FAERS Safety Report 4619223-1 (Version None)
Quarter: 2005Q2

REPORT INFORMATION
  Report Type: 
  Country: None (occurrence: None)
  Receive Date: 20050321
  Receipt Date: 20040921
  Transmission Date: 20051028
  Serious: Yes (Hospitalization, Disabling, Other)
  Sender: FDA-Public Use
  Company Number: 2004-09-1377

PATIENT
  Age: 62 Year
  Sex: Female
  Weight: 71.6683 kg

DRUGS (2)
  1. PEG-INTRON [Suspect]
     Indication: HEPATITIS C
     Dosage: SUBCUTANEOUS
     Route: 058
     Dates: start: 20020801
  2. REBETOL [Suspect]
     Indication: HEPATITIS C
     Dosage: ORAL
     Route: 048

REACTIONS (17)
  - AGGRESSION [None]
  - AGITATION [None]
  - ALOPECIA [None]
  - AMNESIA [None]
  - DECREASED APPETITE [None]
  - DRUG DEPENDENCE [None]
  - DRUG INEFFECTIVE [None]
  - FLANK PAIN [None]
  - INSOMNIA [None]
  - MAJOR DEPRESSION [None]
  - NEUROPATHY [None]
  - PSORIASIS [None]
  - PSYCHOTIC DISORDER [None]
  - RASH [None]
  - SUICIDAL IDEATION [None]
  - TRACHEOBRONCHITIS [None]
  - WEIGHT DECREASED [None]
